FAERS Safety Report 26145472 (Version 1)
Quarter: 2025Q4

REPORT INFORMATION
  Report Type: Spontaneous
  Country: US (occurrence: US)
  Receive Date: 20251211
  Receipt Date: 20251211
  Transmission Date: 20260118
  Serious: Yes (Death, Hospitalization)
  Sender: SIGMA TAU
  Company Number: US-LEADIANT BIOSCIENCES, INC.-2025LBI000286

PATIENT
  Sex: Male

DRUGS (6)
  1. ABELCET [Suspect]
     Active Substance: AMPHOTERICIN B\DIMYRISTOYLPHOSPHATIDYLCHOLINE, DL-\DIMYRISTOYLPHOSPHATIDYLGLYCEROL, DL-
     Indication: Pulmonary mucormycosis
     Route: 065
  2. ABELCET [Suspect]
     Active Substance: AMPHOTERICIN B\DIMYRISTOYLPHOSPHATIDYLCHOLINE, DL-\DIMYRISTOYLPHOSPHATIDYLGLYCEROL, DL-
     Indication: Antibiotic therapy
  3. MICAFUNGIN [Suspect]
     Active Substance: MICAFUNGIN SODIUM
     Indication: Pulmonary mucormycosis
     Route: 065
  4. MICAFUNGIN [Suspect]
     Active Substance: MICAFUNGIN SODIUM
     Indication: Antibiotic therapy
  5. MEROPENEM [Concomitant]
     Active Substance: MEROPENEM
     Indication: Evidence based treatment
     Route: 065
  6. VANCOMYCIN [Concomitant]
     Active Substance: VANCOMYCIN
     Indication: Evidence based treatment
     Route: 065

REACTIONS (1)
  - Drug ineffective [Fatal]
